FAERS Safety Report 19991290 (Version 1)
Quarter: 2021Q4

REPORT INFORMATION
  Report Type: Spontaneous
  Country: US (occurrence: US)
  Receive Date: 20211023
  Receipt Date: 20211023
  Transmission Date: 20220303
  Serious: No
  Sender: FDA-Public Use
  Company Number: None

PATIENT
  Sex: Female

DRUGS (18)
  1. TEMOZOLOMIDE [Suspect]
     Active Substance: TEMOZOLOMIDE
     Indication: Brain neoplasm malignant
     Dosage: ?          OTHER FREQUENCY:QDX5D OF 28D;
     Route: 048
     Dates: start: 20210730
  2. ACETAMINOPHEN\CODEINE PHOSPHATE [Concomitant]
     Active Substance: ACETAMINOPHEN\CODEINE PHOSPHATE
  3. AMLODIPINE [Concomitant]
     Active Substance: AMLODIPINE BESYLATE
  4. ATIVAN [Concomitant]
     Active Substance: LORAZEPAM
  5. DEXAMETHASONE [Concomitant]
     Active Substance: DEXAMETHASONE
  6. LASIX [Concomitant]
     Active Substance: FUROSEMIDE
  7. LOPERAMIDE [Concomitant]
     Active Substance: LOPERAMIDE
  8. LORATADINE [Concomitant]
     Active Substance: LORATADINE
  9. METFORMIN [Concomitant]
     Active Substance: METFORMIN HYDROCHLORIDE
  10. METOPROLOL SUCCINATE [Concomitant]
     Active Substance: METOPROLOL SUCCINATE
  11. OMEPRAZOLE [Concomitant]
     Active Substance: OMEPRAZOLE
  12. PAROXETINE [Concomitant]
     Active Substance: PAROXETINE
  13. RESTASIS [Concomitant]
     Active Substance: CYCLOSPORINE
  14. ROSUVASTATIN [Concomitant]
     Active Substance: ROSUVASTATIN
  15. SINGULAIR [Concomitant]
     Active Substance: MONTELUKAST SODIUM
  16. VENTOLIN [Concomitant]
     Active Substance: ALBUTEROL SULFATE
  17. WARFARIN [Concomitant]
     Active Substance: WARFARIN
  18. ZOFRAN [Concomitant]
     Active Substance: ONDANSETRON HYDROCHLORIDE

REACTIONS (3)
  - Red blood cell count decreased [None]
  - Heart rate irregular [None]
  - Brain oedema [None]
